FAERS Safety Report 15899667 (Version 2)
Quarter: 2019Q2

REPORT INFORMATION
  Report Type: Spontaneous
  Country: US (occurrence: US)
  Receive Date: 20190201
  Receipt Date: 20190409
  Transmission Date: 20190711
  Serious: No
  Sender: FDA-Public Use
  Company Number: US-PFIZER INC-2018526506

PATIENT
  Age: 50 Year
  Sex: Male
  Weight: 108.8 kg

DRUGS (4)
  1. SUTENT [Suspect]
     Active Substance: SUNITINIB MALATE
     Dosage: 50 MG, CYCLIC (50 MG FOR 28 DAYS AND THEN IS OFF FOR 2 WEEKS)
     Route: 048
  2. METFORMIN [Concomitant]
     Active Substance: METFORMIN HYDROCHLORIDE
     Indication: DIABETES MELLITUS
     Dosage: 500 MG, 2X/DAY
     Route: 048
  3. SUTENT [Suspect]
     Active Substance: SUNITINIB MALATE
     Indication: RENAL CANCER
     Dosage: 50 MG, CYCLIC (ONCE A DAY 7 DAYS, OFF 14 DAYS, THEN ON 7 DAYS)
     Route: 048
     Dates: start: 2018
  4. SUTENT [Suspect]
     Active Substance: SUNITINIB MALATE
     Dosage: 50 MG, CYCLIC; (28 DAYS AND STOPS FOR 7 DAY)
     Route: 048
     Dates: start: 201811

REACTIONS (1)
  - Neoplasm progression [Unknown]
